FAERS Safety Report 9482497 (Version 3)
Quarter: 2014Q1

REPORT INFORMATION
  Report Type: Spontaneous
  Country: FR (occurrence: FR)
  Receive Date: 20130828
  Receipt Date: 20140124
  Transmission Date: 20141002
  Serious: Yes (Hospitalization)
  Sender: FDA-Public Use
  Company Number: FR-SANOFI-AVENTIS-2013SA085176

PATIENT
  Age: 63 Year
  Sex: Male

DRUGS (7)
  1. TAVANIC [Suspect]
     Indication: INTERVERTEBRAL DISCITIS
     Route: 048
     Dates: start: 20130702, end: 20130903
  2. RIFADINE [Suspect]
     Indication: INTERVERTEBRAL DISCITIS
     Route: 048
     Dates: start: 20130702, end: 20130903
  3. TOPALGIC [Concomitant]
     Route: 048
  4. DAFALGAN [Concomitant]
     Route: 048
  5. SOLUPRED [Concomitant]
     Route: 048
  6. MYOLASTAN [Concomitant]
     Route: 048
  7. PARIET [Concomitant]
     Route: 048

REACTIONS (2)
  - Neutropenia [Not Recovered/Not Resolved]
  - Thrombocytopenia [Not Recovered/Not Resolved]
